FAERS Safety Report 4993957-1 (Version None)
Quarter: 2006Q2

REPORT INFORMATION
  Report Type: 
  Country: None (occurrence: None)
  Receive Date: 20060505
  Receipt Date: 20060307
  Transmission Date: 20061013
  Serious: No
  Sender: FDA-Public Use
  Company Number: BE-GLAXOSMITHKLINE-B0415578A

PATIENT
  Age: 32 Year
  Sex: Male

DRUGS (1)
  1. ZANTAC [Suspect]
     Indication: DRUG USE FOR UNKNOWN INDICATION
     Route: 042
     Dates: start: 20030101, end: 20051205

REACTIONS (5)
  - ECZEMA [None]
  - HYPERSENSITIVITY [None]
  - ILL-DEFINED DISORDER [None]
  - PRURITUS [None]
  - RASH PAPULAR [None]
